FAERS Safety Report 21423087 (Version 1)
Quarter: 2022Q4

REPORT INFORMATION
  Report Type: Other
  Country: CN (occurrence: CN)
  Receive Date: 20221007
  Receipt Date: 20221007
  Transmission Date: 20230113
  Serious: Yes (Other)
  Sender: FDA-Public Use
  Company Number: CN-GE HEALTHCARE-2022CSU007236

PATIENT
  Age: 60 Year
  Sex: Male
  Weight: 55 kg

DRUGS (2)
  1. VISIPAQUE [Suspect]
     Active Substance: IODIXANOL
     Indication: Angiogram cerebral
     Dosage: 64 GM, SINGLE
     Route: 042
     Dates: start: 20220712, end: 20220712
  2. VISIPAQUE [Suspect]
     Active Substance: IODIXANOL
     Indication: Cerebral infarction

REACTIONS (4)
  - Skin tightness [Recovering/Resolving]
  - Hypoaesthesia [Recovering/Resolving]
  - Flushing [Recovering/Resolving]
  - Swelling [Recovering/Resolving]

NARRATIVE: CASE EVENT DATE: 20220712
